FAERS Safety Report 9680739 (Version 1)
Quarter: 2013Q4

REPORT INFORMATION
  Report Type: Report from Study
  Country: MX (occurrence: MX)
  Receive Date: 20131111
  Receipt Date: 20131111
  Transmission Date: 20140711
  Serious: Yes (Other)
  Sender: FDA-Public Use
  Company Number: PHHY2013MX126177

PATIENT
  Sex: Female
  Weight: 2.21 kg

DRUGS (4)
  1. TEGRETOL-XR [Suspect]
     Dosage: MATERNAL DOSE: 3DF DAILY
     Route: 064
  2. TEGRETOL [Suspect]
     Dosage: MATERNAL DOSE : 400 MG TID
     Route: 064
     Dates: start: 20121208
  3. TEGRETOL [Suspect]
     Dosage: MATERNAL DOSE : 400 MG 0.5 DF DAILY
     Route: 064
     Dates: start: 201308
  4. MULTI-VIT [Concomitant]
     Dosage: UNK (1 DF DAILY) MOTHER DOSE
     Route: 064

REACTIONS (5)
  - Premature baby [Unknown]
  - Immature respiratory system [Unknown]
  - Dyspnoea [Unknown]
  - Low birth weight baby [Unknown]
  - Foetal exposure during pregnancy [Unknown]
